FAERS Safety Report 20378687 (Version 1)
Quarter: 2022Q1

REPORT INFORMATION
  Report Type: Spontaneous
  Country: JP (occurrence: JP)
  Receive Date: 20220126
  Receipt Date: 20220126
  Transmission Date: 20220424
  Serious: Yes (Death)
  Sender: FDA-Public Use
  Company Number: JP-ASTELLAS-2021JP025194

PATIENT
  Age: 8 Decade
  Sex: Male

DRUGS (1)
  1. PADCEV [Suspect]
     Active Substance: ENFORTUMAB VEDOTIN-EJFV
     Indication: Transitional cell carcinoma
     Route: 058
     Dates: start: 20211214, end: 20211228

REACTIONS (3)
  - Diarrhoea [Unknown]
  - Disease progression [Fatal]
  - Product use issue [Unknown]

NARRATIVE: CASE EVENT DATE: 20211214
